FAERS Safety Report 5709863-0 (Version None)
Quarter: 2008Q2

REPORT INFORMATION
  Report Type: 
  Country: None (occurrence: None)
  Receive Date: 20080418
  Receipt Date: 20070212
  Transmission Date: 20081010
  Serious: No
  Sender: FDA-Public Use
  Company Number: US-ASTRAZENECA-2007UW02840

PATIENT
  Age: 69 Year
  Sex: Female
  Weight: 72.6 kg

DRUGS (4)
  1. TOPROL-XL [Suspect]
     Indication: ATRIAL FIBRILLATION
     Route: 048
  2. COUMADIN [Concomitant]
  3. NEXIUM [Concomitant]
  4. DIGOXIN [Concomitant]

REACTIONS (2)
  - EYE HAEMORRHAGE [None]
  - EYE PRURITUS [None]
